FAERS Safety Report 8306618-8 (Version None)
Quarter: 2012Q2

REPORT INFORMATION
  Report Type: 
  Country: None (occurrence: None)
  Receive Date: 20120424
  Receipt Date: 20120416
  Transmission Date: 20120825
  Serious: Yes (Hospitalization)
  Sender: FDA-Public Use
  Company Number: US-BAYER-2012-015446

PATIENT
  Age: 29 Year
  Sex: Female
  Weight: 86.168 kg

DRUGS (8)
  1. DROSPIRENONE AND ETHINYL ESTRADIOL [Suspect]
     Indication: CONTRACEPTION
     Dosage: UNK
     Dates: start: 20081101, end: 20091201
  2. ZITHROMAX [Concomitant]
     Dosage: 250 MG, QD
  3. MUCINEX DM [Concomitant]
     Dosage: UNK UNK, BID
  4. YAZ [Suspect]
     Indication: CONTRACEPTION
     Dosage: UNK
     Dates: start: 20080201, end: 20081101
  5. ADVAIR DISKUS 100/50 [Concomitant]
     Dosage: UNK UNK, BID
  6. VICODIN [Concomitant]
     Dosage: UNK UNK, PRN
     Route: 048
  7. ZITHROMAX [Concomitant]
     Dosage: 250 MG, BID
  8. MEDROL [Concomitant]
     Dosage: 4 MG, UNK
     Route: 048

REACTIONS (6)
  - DEPRESSION [None]
  - PULMONARY EMBOLISM [None]
  - FEAR OF DEATH [None]
  - DEEP VEIN THROMBOSIS [None]
  - EMOTIONAL DISTRESS [None]
  - NERVOUSNESS [None]
